FAERS Safety Report 20632129 (Version 1)
Quarter: 2022Q1

REPORT INFORMATION
  Report Type: Report from Study
  Country: US (occurrence: None)
  Receive Date: 20220324
  Receipt Date: 20220324
  Transmission Date: 20220423
  Serious: Yes (Hospitalization)
  Sender: FDA-Public Use
  Company Number: US-ROCHE-783936

PATIENT
  Age: 59 Year
  Sex: Female

DRUGS (3)
  1. BEVACIZUMAB [Suspect]
     Active Substance: BEVACIZUMAB
     Indication: Ovarian cancer
     Dosage: FREQUENCY: INTRAVENOUS OVER 30-90 MIN ON DAY ONE?LAST?ADMINISTRATION DATE OF IND AGENT:11/FEB/2011
     Route: 042
     Dates: start: 20101112
  2. PACLITAXEL [Suspect]
     Active Substance: PACLITAXEL
     Indication: Ovarian cancer
     Dosage: FREQUENCY: OVER 3 HOURS ON DAY ONE.
     Route: 042
     Dates: start: 20101112
  3. CARBOPLATIN [Suspect]
     Active Substance: CARBOPLATIN
     Indication: Ovarian cancer
     Dosage: AUC 5 INTRAVENOUS OVER 30 MINUTES ON DAY ONE.
     Route: 042
     Dates: start: 20101112

REACTIONS (6)
  - Sinusitis [Recovered/Resolved]
  - Pyrexia [Recovered/Resolved]
  - Nasal congestion [Recovered/Resolved]
  - Cough [Recovered/Resolved]
  - Laryngeal pain [Recovered/Resolved]
  - Sinus disorder [Not Recovered/Not Resolved]

NARRATIVE: CASE EVENT DATE: 20110216
